FAERS Safety Report 9424432 (Version 3)
Quarter: 2013Q3

REPORT INFORMATION
  Report Type: Report from Study
  Country: CN (occurrence: CN)
  Receive Date: 20130729
  Receipt Date: 20130903
  Transmission Date: 20140515
  Serious: Yes (Hospitalization, Other)
  Sender: FDA-Public Use
  Company Number: CN-ASTELLAS-2013US007875

PATIENT
  Age: 73 Year
  Sex: Male

DRUGS (1)
  1. ERLOTINIB TABLET [Suspect]
     Indication: NON-SMALL CELL LUNG CANCER
     Dosage: 150 MG, UID/QD
     Route: 048
     Dates: start: 20130606

REACTIONS (11)
  - Hepatic function abnormal [Not Recovered/Not Resolved]
  - Mouth ulceration [Unknown]
  - Transaminases increased [Unknown]
  - Nausea [Unknown]
  - Diarrhoea [Unknown]
  - Rash [Unknown]
  - Liver injury [Unknown]
  - Rash erythematous [Not Recovered/Not Resolved]
  - Cardiac disorder [Unknown]
  - Gastric disorder [Unknown]
  - Blood test abnormal [Not Recovered/Not Resolved]
